FAERS Safety Report 15460255 (Version 1)
Quarter: 2018Q4

REPORT INFORMATION
  Report Type: Spontaneous
  Country: US (occurrence: US)
  Receive Date: 20181003
  Receipt Date: 20181003
  Transmission Date: 20190204
  Serious: No
  Sender: FDA-Public Use
  Company Number: US-TEVA-2018-US-958714

PATIENT
  Sex: Male

DRUGS (4)
  1. INTERFERON [Concomitant]
     Active Substance: INTERFERON
     Indication: CHRONIC LYMPHOCYTIC LEUKAEMIA
  2. FENTANYL. [Concomitant]
     Active Substance: FENTANYL
     Indication: CANCER PAIN
     Route: 065
  3. OTFC-T [Suspect]
     Active Substance: FENTANYL
     Indication: CANCER PAIN
     Route: 065
     Dates: start: 2012
  4. GLEVIC [Suspect]
     Active Substance: IMATINIB MESYLATE
     Route: 065

REACTIONS (1)
  - Malaise [Not Recovered/Not Resolved]
